FAERS Safety Report 8538980-5 (Version None)
Quarter: 2012Q3

REPORT INFORMATION
  Report Type: 
  Country: None (occurrence: None)
  Receive Date: 20120726
  Receipt Date: 20120718
  Transmission Date: 20120928
  Serious: Yes (Hospitalization, Other)
  Sender: FDA-Public Use
  Company Number: PHEH2012US012836

PATIENT
  Sex: Female
  Weight: 87.54 kg

DRUGS (18)
  1. THYROID TAB [Concomitant]
     Dosage: 90 MG, QD
     Route: 048
     Dates: start: 20111118
  2. TRAZODONE HYDROCHLORIDE [Concomitant]
     Dosage: 150 MG, QHS
     Route: 048
  3. GILENYA [Suspect]
     Indication: RELAPSING-REMITTING MULTIPLE SCLEROSIS
     Dosage: 0.5 MG, QD
     Route: 048
     Dates: start: 20110808
  4. TOPAMAX [Concomitant]
     Dosage: 100 MG FOUR TIMES DAILY
     Route: 048
  5. SYNTHROID [Concomitant]
     Dosage: UNK UKN, UNK
  6. GABAPENTIN [Concomitant]
     Dosage: 300 MG, QHS
     Route: 048
     Dates: start: 20111118
  7. ADDERALL 5 [Concomitant]
     Dosage: 4 DF, QD (2 TABLET IN MORNING AND 2 AT NOON)
     Route: 048
  8. VALIUM [Concomitant]
     Indication: MUSCLE SPASMS
     Dosage: 2 DF, Q12H
     Route: 048
  9. ATROVENT [Concomitant]
     Dosage: UNK UKN, UNK
  10. PROZAC [Concomitant]
     Dosage: 20 MG, UNK
     Route: 048
  11. PROVIGIL [Concomitant]
     Dosage: 200 MG, QD
     Route: 048
  12. LASIX [Concomitant]
     Indication: OEDEMA
     Dosage: 1 DF, QD
     Route: 048
     Dates: start: 20111118
  13. KEPPRA [Concomitant]
     Dosage: UNK UKN, UNK
  14. BYETTA [Concomitant]
     Indication: DIABETES MELLITUS
     Dosage: 5 UG, BID
     Route: 030
     Dates: start: 20111118
  15. ALBUTEROL [Concomitant]
     Dosage: UNK UKN, PRN
  16. AMANTADINE HCL [Concomitant]
     Dosage: 100 MG, QD
     Route: 048
  17. KLONOPIN [Concomitant]
     Dosage: 0.5 MG TWO TAB AT BEDTIME
     Dates: start: 20111118
  18. LEVOTHYROXINE SODIUM [Concomitant]
     Dosage: 1 DF, UNK

REACTIONS (75)
  - VISUAL IMPAIRMENT [None]
  - ELECTROENCEPHALOGRAM ABNORMAL [None]
  - PARALYSIS [None]
  - MUSCLE TWITCHING [None]
  - CONTUSION [None]
  - MEMORY IMPAIRMENT [None]
  - DYSGEUSIA [None]
  - DYSPNOEA [None]
  - DIZZINESS [None]
  - CONVULSION [None]
  - CONFUSIONAL STATE [None]
  - ASTHENIA [None]
  - PARAESTHESIA ORAL [None]
  - MUSCLE SPASMS [None]
  - DIPLOPIA [None]
  - POOR QUALITY SLEEP [None]
  - DYSKINESIA [None]
  - DRY EYE [None]
  - HEAD TITUBATION [None]
  - PAIN IN EXTREMITY [None]
  - BALANCE DISORDER [None]
  - MIGRAINE [None]
  - DIARRHOEA [None]
  - CLUMSINESS [None]
  - PETECHIAE [None]
  - CREATININE RENAL CLEARANCE DECREASED [None]
  - STRESS [None]
  - PYREXIA [None]
  - DYSPHONIA [None]
  - SLEEP DISORDER [None]
  - POLYDIPSIA [None]
  - EPISTAXIS [None]
  - JOINT STIFFNESS [None]
  - URINARY TRACT INFECTION [None]
  - BACK PAIN [None]
  - HEADACHE [None]
  - SPEECH DISORDER [None]
  - FALL [None]
  - BLOOD ALBUMIN DECREASED [None]
  - FATIGUE [None]
  - BOWEL MOVEMENT IRREGULARITY [None]
  - ANXIETY [None]
  - OROPHARYNGEAL PAIN [None]
  - DEPRESSION [None]
  - MENTAL STATUS CHANGES [None]
  - SOMNOLENCE [None]
  - BLOOD THYROID STIMULATING HORMONE DECREASED [None]
  - HAEMORRHAGE [None]
  - INTERVERTEBRAL DISC PROTRUSION [None]
  - MYOCLONUS [None]
  - HYPOAESTHESIA [None]
  - CENTRAL NERVOUS SYSTEM LESION [None]
  - COORDINATION ABNORMAL [None]
  - NAUSEA [None]
  - OBSESSIVE THOUGHTS [None]
  - EUPHORIC MOOD [None]
  - ARTHRALGIA [None]
  - MUSCLE TIGHTNESS [None]
  - VERTIGO [None]
  - POSTERIOR REVERSIBLE ENCEPHALOPATHY SYNDROME [None]
  - BRAIN OEDEMA [None]
  - LABILE HYPERTENSION [None]
  - BRONCHIAL HYPERREACTIVITY [None]
  - VERY LOW DENSITY LIPOPROTEIN DECREASED [None]
  - NECK PAIN [None]
  - MICTURITION URGENCY [None]
  - PHOTOPHOBIA [None]
  - COGNITIVE DISORDER [None]
  - AURA [None]
  - TREMOR [None]
  - OEDEMA PERIPHERAL [None]
  - PARAESTHESIA [None]
  - DISTURBANCE IN ATTENTION [None]
  - DYSURIA [None]
  - VISION BLURRED [None]
